FAERS Safety Report 7213657-7 (Version None)
Quarter: 2011Q1

REPORT INFORMATION
  Report Type: 
  Country: None (occurrence: None)
  Receive Date: 20110106
  Receipt Date: 20101229
  Transmission Date: 20110831
  Serious: Yes (Other)
  Sender: FDA-Public Use
  Company Number: GB-B.I. PHARMACEUTICALS,INC./RIDGEFIELD-2011-BP-00068BP

PATIENT
  Age: 69 Year
  Sex: Male

DRUGS (11)
  1. BISOPROLOL [Suspect]
     Indication: BLOOD PRESSURE MANAGEMENT
     Dosage: 1.25 MG
  2. STEROIDS [Concomitant]
  3. OMEPRAZOLE [Concomitant]
  4. VENTOLIN DS [Concomitant]
  5. ISOSORBIDE DINITRATE [Concomitant]
  6. TIOTROPIUM BROMIDE [Concomitant]
  7. QUININE [Concomitant]
  8. RAMIPRIL [Suspect]
     Indication: BLOOD PRESSURE MANAGEMENT
     Dosage: 1.25 MG
  9. MELOXICAM [Suspect]
     Indication: PAIN
     Dosage: 7.5 MG
     Dates: start: 20100916
  10. ACETYLSALICYLIC ACID [Suspect]
     Indication: MYOCARDIAL INFARCTION
     Dosage: 75 MG
     Dates: start: 20100916
  11. SERETIDE [Concomitant]

REACTIONS (8)
  - DELIRIUM [None]
  - EYE MOVEMENT DISORDER [None]
  - SOMNOLENCE [None]
  - HALLUCINATION [None]
  - DIARRHOEA [None]
  - CONFUSIONAL STATE [None]
  - DRUG INTERACTION [None]
  - CHROMATURIA [None]
